FAERS Safety Report 9186511 (Version 2)
Quarter: 2013Q2

REPORT INFORMATION
  Report Type: Spontaneous
  Country: US (occurrence: None)
  Receive Date: 20130129
  Receipt Date: 20130619
  Transmission Date: 20140414
  Serious: Yes (Hospitalization, Disabling, Other)
  Sender: FDA-Public Use
  Company Number: ACO_33931_2013

PATIENT
  Age: 31 Year
  Sex: Female

DRUGS (3)
  1. AMPYRA (DALFAMPRIDINE) [Suspect]
     Indication: RELAPSING-REMITTING MULTIPLE SCLEROSIS
     Dates: start: 2012
  2. COPAXONE (GLATIRAMER ACETATE) [Concomitant]
  3. AVONEX (INTERFERON BETA-1A) [Concomitant]

REACTIONS (3)
  - Groin pain [None]
  - Pain in extremity [None]
  - Movement disorder [None]
